FAERS Safety Report 26178958 (Version 1)
Quarter: 2025Q4

REPORT INFORMATION
  Report Type: Spontaneous
  Country: KR (occurrence: KR)
  Receive Date: 20251219
  Receipt Date: 20251219
  Transmission Date: 20260117
  Serious: Yes (Other)
  Sender: STRIDES
  Company Number: None

PATIENT
  Age: 6 Decade
  Sex: Female

DRUGS (20)
  1. PREDNISOLONE [Suspect]
     Active Substance: PREDNISOLONE
     Indication: Invasive ductal breast carcinoma
     Dosage: R-CVP REGIMEN
     Route: 065
     Dates: start: 2024
  2. PREDNISOLONE [Suspect]
     Active Substance: PREDNISOLONE
     Indication: HER2 negative breast cancer
  3. PREDNISOLONE [Suspect]
     Active Substance: PREDNISOLONE
     Indication: Hormone receptor positive breast cancer
  4. PREDNISOLONE [Suspect]
     Active Substance: PREDNISOLONE
     Indication: Breast cancer metastatic
  5. PREDNISOLONE [Suspect]
     Active Substance: PREDNISOLONE
     Indication: Follicular lymphoma stage III
  6. RITUXIMAB [Suspect]
     Active Substance: RITUXIMAB
     Indication: Invasive ductal breast carcinoma
     Dosage: R-CVP REGIMEN
     Route: 065
     Dates: start: 2024
  7. RITUXIMAB [Suspect]
     Active Substance: RITUXIMAB
     Indication: Breast cancer metastatic
  8. RITUXIMAB [Suspect]
     Active Substance: RITUXIMAB
     Indication: Follicular lymphoma stage III
  9. RITUXIMAB [Suspect]
     Active Substance: RITUXIMAB
     Indication: HER2 negative breast cancer
  10. RITUXIMAB [Suspect]
     Active Substance: RITUXIMAB
     Indication: Hormone receptor positive breast cancer
  11. CYCLOPHOSPHAMIDE [Suspect]
     Active Substance: CYCLOPHOSPHAMIDE
     Indication: Invasive ductal breast carcinoma
     Dosage: R-CVP REGIMEN
     Route: 065
     Dates: start: 2024
  12. CYCLOPHOSPHAMIDE [Suspect]
     Active Substance: CYCLOPHOSPHAMIDE
     Indication: Breast cancer metastatic
  13. CYCLOPHOSPHAMIDE [Suspect]
     Active Substance: CYCLOPHOSPHAMIDE
     Indication: Follicular lymphoma stage III
  14. CYCLOPHOSPHAMIDE [Suspect]
     Active Substance: CYCLOPHOSPHAMIDE
     Indication: Hormone receptor positive breast cancer
  15. CYCLOPHOSPHAMIDE [Suspect]
     Active Substance: CYCLOPHOSPHAMIDE
     Indication: HER2 negative breast cancer
  16. VINCRISTINE [Suspect]
     Active Substance: VINCRISTINE
     Indication: Invasive ductal breast carcinoma
     Dosage: R-CVP REGIMEN
     Route: 065
     Dates: start: 2024
  17. VINCRISTINE [Suspect]
     Active Substance: VINCRISTINE
     Indication: Breast cancer metastatic
  18. VINCRISTINE [Suspect]
     Active Substance: VINCRISTINE
     Indication: Follicular lymphoma stage III
  19. VINCRISTINE [Suspect]
     Active Substance: VINCRISTINE
     Indication: HER2 negative breast cancer
  20. VINCRISTINE [Suspect]
     Active Substance: VINCRISTINE
     Indication: Hormone receptor positive breast cancer

REACTIONS (1)
  - Cytopenia [Unknown]

NARRATIVE: CASE EVENT DATE: 20240101
